APPROVED DRUG PRODUCT: NIFEDIPINE
Active Ingredient: NIFEDIPINE
Strength: 90MG
Dosage Form/Route: TABLET, EXTENDED RELEASE;ORAL
Application: A213361 | Product #003 | TE Code: AB1
Applicant: AUROBINDO PHARMA LTD
Approved: Jul 19, 2021 | RLD: No | RS: No | Type: RX